FAERS Safety Report 5741694-8 (Version None)
Quarter: 2008Q2

REPORT INFORMATION
  Report Type: 
  Country: None (occurrence: None)
  Receive Date: 20080519
  Receipt Date: 20070510
  Transmission Date: 20081010
  Serious: No
  Sender: FDA-Public Use
  Company Number: US-BAYER-US-2007-016790

PATIENT
  Age: 30 Year
  Sex: Female
  Weight: 77 kg

DRUGS (2)
  1. ULTRAVIST 300 [Suspect]
     Indication: COMPUTERISED TOMOGRAM
     Dosage: UNIT DOSE: 125 ML
     Route: 042
     Dates: start: 20070510, end: 20070510
  2. GASTROVIEW [Concomitant]
     Indication: COMPUTERISED TOMOGRAM
     Route: 048
     Dates: start: 20070510, end: 20070510

REACTIONS (3)
  - LIP SWELLING [None]
  - SNEEZING [None]
  - URTICARIA [None]
